FAERS Safety Report 5373714-7 (Version None)
Quarter: 2007Q2

REPORT INFORMATION
  Report Type: 
  Country: None (occurrence: None)
  Receive Date: 20070618
  Receipt Date: 20061201
  Transmission Date: 20071010
  Serious: Yes (Disabling)
  Sender: FDA-Public Use
  Company Number: T200601396

PATIENT
  Age: 58 Year
  Sex: Female

DRUGS (2)
  1. METHADOSE [Suspect]
     Dosage: 50 MG (5 TABLETS), BID, UNK
     Dates: start: 20020901
  2. MORPHINE [Concomitant]

REACTIONS (1)
  - RESPIRATORY ARREST [None]
